FAERS Safety Report 15562420 (Version 2)
Quarter: 2018Q4

REPORT INFORMATION
  Report Type: Spontaneous
  Country: US (occurrence: US)
  Receive Date: 20181029
  Receipt Date: 20181105
  Transmission Date: 20190205
  Serious: Yes (Hospitalization, Other)
  Sender: FDA-Public Use
  Company Number: US-FRESENIUS MEDICAL CARE RENAL THERAPIES GROUP-FMC-1810-001882

PATIENT
  Age: 47 Year
  Sex: Male

DRUGS (1)
  1. DELFLEX [Suspect]
     Active Substance: CALCIUM CHLORIDE\DEXTROSE\MAGNESIUM CHLORIDE\SODIUM CHLORIDE\SODIUM LACTATE
     Indication: END STAGE RENAL DISEASE
     Dosage: FIVE FILLS OF 1800 ML FOR A TOTAL TREATMENT VOLUME OF 9000 ML
     Route: 033

REACTIONS (5)
  - Incorrect dose administered [Unknown]
  - Abdominal distension [Recovering/Resolving]
  - Abdominal abscess [Unknown]
  - Fluid overload [Recovering/Resolving]
  - Peritonitis [Unknown]

NARRATIVE: CASE EVENT DATE: 20181022
